FAERS Safety Report 21273154 (Version 4)
Quarter: 2025Q1

REPORT INFORMATION
  Report Type: Spontaneous
  Country: GR (occurrence: GR)
  Receive Date: 20220831
  Receipt Date: 20250318
  Transmission Date: 20250409
  Serious: Yes (Hospitalization)
  Sender: NOVARTIS
  Company Number: GR-NOVARTISPH-PHHY2018GR154435

PATIENT
  Age: 69 Year
  Sex: Female
  Weight: 98 kg

DRUGS (38)
  1. TYKERB [Suspect]
     Active Substance: LAPATINIB DITOSYLATE
     Indication: Breast cancer
     Dosage: 1250 MG, QD
     Route: 048
     Dates: start: 20180611, end: 20180611
  2. TYKERB [Suspect]
     Active Substance: LAPATINIB DITOSYLATE
     Indication: HER2 positive breast cancer
     Dosage: 1250 MG, QD, (MOST RECENT DOSE PRIOR TO THE EVENT: 14/NOV/2018)
     Route: 048
     Dates: start: 20180618, end: 20180709
  3. TYKERB [Suspect]
     Active Substance: LAPATINIB DITOSYLATE
     Dosage: 1250 MG, QD
     Route: 042
     Dates: start: 20180619, end: 20180709
  4. TYKERB [Suspect]
     Active Substance: LAPATINIB DITOSYLATE
     Dosage: 1000 MG, QD
     Route: 048
     Dates: start: 20180723, end: 20181113
  5. TYKERB [Suspect]
     Active Substance: LAPATINIB DITOSYLATE
     Dosage: 750 MG, QD
     Route: 065
     Dates: start: 20181114, end: 20190503
  6. CAPECITABINE [Suspect]
     Active Substance: CAPECITABINE
     Indication: Breast cancer
     Dosage: 2000 MG, QD (MOST RECENT DOSE PRIOR TO THE EVENT ON 22/OCT/2018)
     Route: 042
     Dates: start: 20180618, end: 20180709
  7. CAPECITABINE [Suspect]
     Active Substance: CAPECITABINE
     Indication: HER2 positive breast cancer
     Route: 042
     Dates: start: 20180723, end: 20181012
  8. CAPECITABINE [Suspect]
     Active Substance: CAPECITABINE
     Route: 042
     Dates: start: 20181022, end: 20190102
  9. PERTUZUMAB [Suspect]
     Active Substance: PERTUZUMAB
     Indication: Breast cancer
     Dosage: 840 MG/KG, Q3W (MOST RECENT DOSE PRIOR TO THE EVENT: 20161212)
     Route: 042
     Dates: start: 20161018
  10. PERTUZUMAB [Suspect]
     Active Substance: PERTUZUMAB
     Indication: HER2 positive breast cancer
     Dosage: 840 MG/KG, TIW (MOST RECENT DOSE PRIOR TO THE EVENT:12/DEC/2016)
     Route: 042
     Dates: start: 20161117, end: 20161117
  11. ADO-TRASTUZUMAB EMTANSINE [Suspect]
     Active Substance: ADO-TRASTUZUMAB EMTANSINE
     Indication: Breast cancer
     Dosage: 270 MG, Q3W
     Route: 048
     Dates: start: 20170726, end: 20180504
  12. ADO-TRASTUZUMAB EMTANSINE [Suspect]
     Active Substance: ADO-TRASTUZUMAB EMTANSINE
     Indication: HER2 positive breast cancer
  13. TRASTUZUMAB [Suspect]
     Active Substance: TRASTUZUMAB
     Indication: Breast cancer
     Dosage: 8 MG/KG, Q3W (SOLUTION FOR INFUSION)
     Route: 042
     Dates: start: 20161018
  14. TRASTUZUMAB [Suspect]
     Active Substance: TRASTUZUMAB
     Indication: HER2 positive breast cancer
     Dosage: 780 MG, TIW (SOLUTION FOR INFUSION) (MOST RECENT DOSE PRIOR TO THE EVENT:17/NOV/2016 AND 10/MAY/2019
     Route: 042
     Dates: start: 20161025, end: 20161025
  15. TRASTUZUMAB [Suspect]
     Active Substance: TRASTUZUMAB
     Dosage: 570 MG, TIW (TABLET)
     Route: 048
     Dates: start: 20161117, end: 20170705
  16. TAXOTERE [Suspect]
     Active Substance: DOCETAXEL
     Indication: Breast cancer
     Dosage: 75 MG/KG, Q3W
     Route: 042
     Dates: start: 20161018, end: 20170404
  17. DOCETAXEL [Suspect]
     Active Substance: DOCETAXEL
     Indication: HER2 positive breast cancer
     Dosage: 75 MG/KG, TIW
     Route: 042
     Dates: start: 20161018
  18. DOCETAXEL [Suspect]
     Active Substance: DOCETAXEL
     Dosage: 160 MG, TIW (MOST RECENT DOSE PRIOR TO THE EVENT: 17/NOV/2016)
     Route: 042
     Dates: start: 20161025, end: 20161025
  19. GEMCITABINE [Suspect]
     Active Substance: GEMCITABINE
     Indication: HER2 positive breast cancer
     Route: 048
     Dates: start: 20190510, end: 20190703
  20. GEMCITABINE [Suspect]
     Active Substance: GEMCITABINE
     Route: 048
     Dates: start: 20190724, end: 20190821
  21. GEMCITABINE [Suspect]
     Active Substance: GEMCITABINE
     Route: 042
     Dates: start: 20190828, end: 20190828
  22. ZOMETA [Concomitant]
     Active Substance: ZOLEDRONIC ACID
     Indication: Product used for unknown indication
     Route: 065
     Dates: start: 20161018, end: 20190605
  23. ACETAMINOPHEN\CODEINE PHOSPHATE [Concomitant]
     Active Substance: ACETAMINOPHEN\CODEINE PHOSPHATE
     Indication: Product used for unknown indication
     Route: 065
  24. CALCIUM CARBONATE\CHOLECALCIFEROL [Concomitant]
     Active Substance: CALCIUM CARBONATE\CHOLECALCIFEROL
     Indication: Product used for unknown indication
     Route: 065
  25. CALCIUM CARBONATE\CHOLECALCIFEROL [Concomitant]
     Active Substance: CALCIUM CARBONATE\CHOLECALCIFEROL
     Route: 065
     Dates: start: 20171218, end: 20190605
  26. LEVOTHYROXINE [Concomitant]
     Active Substance: LEVOTHYROXINE
     Indication: Product used for unknown indication
     Route: 065
     Dates: start: 20090615
  27. LEVOTHYROXINE [Concomitant]
     Active Substance: LEVOTHYROXINE
     Route: 065
     Dates: start: 20090615
  28. FENTANYL [Concomitant]
     Active Substance: FENTANYL
     Indication: Product used for unknown indication
     Route: 065
     Dates: start: 20161015
  29. Bilargen [Concomitant]
     Indication: Rash
     Route: 065
     Dates: start: 20180601, end: 20180625
  30. CIPROFLOXACIN [Concomitant]
     Active Substance: CIPROFLOXACIN
     Indication: Pyrexia
     Route: 065
     Dates: start: 20190503, end: 20190510
  31. CIPROFLOXACIN [Concomitant]
     Active Substance: CIPROFLOXACIN
     Route: 065
     Dates: start: 20190705, end: 20190709
  32. LOSEC [Concomitant]
     Active Substance: OMEPRAZOLE
     Indication: Product used for unknown indication
     Route: 065
     Dates: start: 20190703, end: 20190709
  33. Tazolin [Concomitant]
     Indication: Product used for unknown indication
     Route: 065
  34. Stabilanol [Concomitant]
     Indication: Onychomycosis
     Route: 065
     Dates: start: 20171218, end: 20180106
  35. Stabilanol [Concomitant]
     Route: 065
     Dates: start: 20180205, end: 20180224
  36. Stabilanol [Concomitant]
     Route: 065
     Dates: start: 20180225
  37. AUGMENTIN [Concomitant]
     Active Substance: AMOXICILLIN\CLAVULANATE POTASSIUM
     Indication: Product used for unknown indication
     Route: 065
  38. VANCOMYCIN HYDROCHLORIDE [Concomitant]
     Active Substance: VANCOMYCIN HYDROCHLORIDE
     Indication: Product used for unknown indication
     Route: 065
     Dates: start: 20190706, end: 20190709

REACTIONS (3)
  - Device related infection [Recovered/Resolved]
  - Platelet count decreased [Recovered/Resolved]
  - Peripheral sensory neuropathy [Recovered/Resolved]

NARRATIVE: CASE EVENT DATE: 20170517
